FAERS Safety Report 18497276 (Version 4)
Quarter: 2021Q1

REPORT INFORMATION
  Report Type: Spontaneous
  Country: US (occurrence: US)
  Receive Date: 20201112
  Receipt Date: 20210202
  Transmission Date: 20210419
  Serious: No
  Sender: FDA-Public Use
  Company Number: US-PFIZER INC-2020443777

PATIENT
  Age: 68 Year
  Sex: Male

DRUGS (4)
  1. INLYTA [Suspect]
     Active Substance: AXITINIB
     Dosage: 5 MG
     Dates: start: 20201013
  2. ZOMETA [Interacting]
     Active Substance: ZOLEDRONIC ACID
     Dosage: UNK
  3. INLYTA [Interacting]
     Active Substance: AXITINIB
     Dosage: 5 MG
     Dates: start: 20210118
  4. INLYTA [Interacting]
     Active Substance: AXITINIB
     Dosage: 5 MG, 2X/DAY
     Route: 048
     Dates: start: 20201106, end: 20210104

REACTIONS (9)
  - Stomatitis [Unknown]
  - Dysphonia [Unknown]
  - Fatigue [Unknown]
  - Drug interaction [Unknown]
  - Rash [Recovered/Resolved]
  - Influenza like illness [Unknown]
  - Oral discomfort [Not Recovered/Not Resolved]
  - Pain [Unknown]
  - COVID-19 [Unknown]
